FAERS Safety Report 8434009-8 (Version None)
Quarter: 2012Q2

REPORT INFORMATION
  Report Type: 
  Country: None (occurrence: None)
  Receive Date: 20120613
  Receipt Date: 20120529
  Transmission Date: 20120825
  Serious: Yes (Hospitalization, Other)
  Sender: FDA-Public Use
  Company Number: IT-PFIZER INC-2012129832

PATIENT
  Age: 88 Year
  Sex: Male

DRUGS (11)
  1. LASIX [Suspect]
     Dosage: 125 MG; DAILY
     Route: 048
     Dates: start: 20101201, end: 20110113
  2. DEURSIL [Concomitant]
  3. RANOLAZINE [Concomitant]
  4. BISOPROLOL FUMARATE [Suspect]
     Indication: CARDIAC FAILURE
     Dosage: UNK
     Route: 048
     Dates: start: 20101201, end: 20110113
  5. OMEPRAZOLE [Concomitant]
  6. CORDARONE [Suspect]
     Indication: ATRIAL FIBRILLATION
     Dosage: 200 MG; DAILY
     Route: 048
     Dates: start: 20080113
  7. BENEXOL [Concomitant]
  8. FERROUS SULFATE TAB [Concomitant]
  9. COUMADIN [Concomitant]
  10. ENALAPRIL MALEATE [Suspect]
     Indication: HYPERTENSION
     Dosage: 5 MG, 1X/DAY
     Route: 048
     Dates: start: 20101201, end: 20110113
  11. FOLINA [Concomitant]

REACTIONS (3)
  - HYPOTHYROIDISM [None]
  - HYPOTENSION [None]
  - BLOOD CREATININE INCREASED [None]
